FAERS Safety Report 20248980 (Version 4)
Quarter: 2022Q3

REPORT INFORMATION
  Report Type: Report from Study
  Country: US (occurrence: US)
  Receive Date: 20211229
  Receipt Date: 20220705
  Transmission Date: 20221027
  Serious: No
  Sender: FDA-Public Use
  Company Number: US-NOVARTISTESTPH-NVSC2021US298800

PATIENT
  Sex: Male

DRUGS (1)
  1. ENTRESTO [Suspect]
     Active Substance: SACUBITRIL\VALSARTAN
     Indication: Cardiac failure
     Dosage: 1 DOSAGE FORM, BID (49.51 MG)
     Route: 065
     Dates: start: 202012

REACTIONS (6)
  - Oedema peripheral [Unknown]
  - SARS-CoV-2 test positive [Unknown]
  - Bronchitis [Unknown]
  - Productive cough [Unknown]
  - Dizziness [Unknown]
  - Drug ineffective [Unknown]
